FAERS Safety Report 23377702 (Version 1)
Quarter: 2024Q1

REPORT INFORMATION
  Report Type: Spontaneous
  Country: US (occurrence: None)
  Receive Date: 20240105
  Receipt Date: 20240105
  Transmission Date: 20240409
  Serious: Yes (Other)
  Sender: FDA-Public Use
  Company Number: None

PATIENT
  Age: 64 Year
  Sex: Male
  Weight: 95.3 kg

DRUGS (3)
  1. HEPARIN [Suspect]
     Active Substance: HEPARIN SODIUM
  2. IV TUBING - BD ADULT [Concomitant]
  3. HEPARIN 1/2 NS [Concomitant]

REACTIONS (1)
  - Activated partial thromboplastin time prolonged [None]

NARRATIVE: CASE EVENT DATE: 20240103
